FAERS Safety Report 14670761 (Version 1)
Quarter: 2018Q1

REPORT INFORMATION
  Report Type: Spontaneous
  Country: US (occurrence: US)
  Receive Date: 20180321
  Receipt Date: 20180321
  Transmission Date: 20180509
  Serious: No
  Sender: FDA-Public Use
  Company Number: None

PATIENT
  Age: 59 Year
  Sex: Female

DRUGS (1)
  1. CYCLOPHOSPHAMIDE CAP 50MG [Suspect]
     Active Substance: CYCLOPHOSPHAMIDE

REACTIONS (2)
  - Plasma cell myeloma [None]
  - Off label use [None]

NARRATIVE: CASE EVENT DATE: 20180320
